FAERS Safety Report 6877634-8 (Version None)
Quarter: 2010Q3

REPORT INFORMATION
  Report Type: 
  Country: None (occurrence: None)
  Receive Date: 20100727
  Receipt Date: 20100412
  Transmission Date: 20110219
  Serious: No
  Sender: FDA-Public Use
  Company Number: US-ABBOTT-10P-163-0638973-00

PATIENT
  Sex: Female
  Weight: 65.83 kg

DRUGS (2)
  1. SYNTHROID [Suspect]
     Indication: AUTOIMMUNE THYROIDITIS
     Dates: start: 20050101
  2. SYNTHROID [Suspect]
     Indication: THYROIDECTOMY

REACTIONS (7)
  - ALOPECIA [None]
  - ANXIETY [None]
  - FEELING JITTERY [None]
  - INSOMNIA [None]
  - MOOD SWINGS [None]
  - PALPITATIONS [None]
  - WEIGHT DECREASED [None]
